FAERS Safety Report 5024463-6 (Version None)
Quarter: 2006Q2

REPORT INFORMATION
  Report Type: 
  Country: None (occurrence: None)
  Receive Date: 20060613
  Receipt Date: 20060302
  Transmission Date: 20061013
  Serious: Yes (Other)
  Sender: FDA-Public Use
  Company Number: PHEH2006US02841

PATIENT
  Age: 50 Year
  Sex: Female

DRUGS (1)
  1. LAMISIL [Suspect]
     Indication: NAIL TINEA
     Route: 048
     Dates: start: 20060120

REACTIONS (5)
  - ALANINE AMINOTRANSFERASE INCREASED [None]
  - FATIGUE [None]
  - HAEMOCHROMATOSIS [None]
  - HEPATIC ENZYME INCREASED [None]
  - JAUNDICE [None]
